FAERS Safety Report 7915829-2 (Version None)
Quarter: 2011Q4

REPORT INFORMATION
  Report Type: 
  Country: None (occurrence: None)
  Receive Date: 20111115
  Receipt Date: 20111108
  Transmission Date: 20120403
  Serious: Yes (Other)
  Sender: FDA-Public Use
  Company Number: CHPA2011US015720

PATIENT
  Age: 29 Year
  Sex: Male

DRUGS (1)
  1. EXCEDRIN (MIGRAINE) [Suspect]
     Indication: HEADACHE
     Dosage: 4-5 PER DAY
     Route: 048
     Dates: start: 20010101

REACTIONS (2)
  - SCHIZOPHRENIA [None]
  - INCORRECT DRUG ADMINISTRATION DURATION [None]
